FAERS Safety Report 6880001 (Version 2)
Quarter: 2014Q4

REPORT INFORMATION
  Report Type: Spontaneous
  Country: GB (occurrence: GB)
  Receive Date: 20090113
  Receipt Date: 20141225
  Transmission Date: 20150529
  Serious: Yes (Other)
  Sender: FDA-Public Use
  Company Number: PHBS2009GB00457

PATIENT
  Age: 31 Year
  Sex: Female

DRUGS (3)
  1. ERGOMETRINE [Suspect]
     Active Substance: ERGONOVINE MALEATE
     Indication: PRODUCT USED FOR UNKNOWN INDICATION
     Dosage: 500 UG
     Route: 030
  2. SYNTOCINON [Suspect]
     Active Substance: OXYTOCIN
     Indication: PRODUCT USED FOR UNKNOWN INDICATION
     Dosage: 5 IU
     Route: 030
  3. FOLATE SODIUM [Concomitant]
     Active Substance: FOLATE SODIUM
     Indication: PRODUCT USED FOR UNKNOWN INDICATION
     Dosage: 400 UG, QD
     Route: 065

REACTIONS (12)
  - Vision blurred [Not Recovered/Not Resolved]
  - Visual field defect [Not Recovered/Not Resolved]
  - Normal newborn [Unknown]
  - Retinal disorder [Not Recovered/Not Resolved]
  - Retinal pallor [Not Recovered/Not Resolved]
  - Retinal oedema [Not Recovered/Not Resolved]
  - Astigmatism [Not Recovered/Not Resolved]
  - Visual impairment [Unknown]
  - Photopsia [Unknown]
  - Retinal artery occlusion [Not Recovered/Not Resolved]
  - Maternal exposure during pregnancy [Unknown]
  - Retinal migraine [Unknown]
